FAERS Safety Report 5941668-8 (Version None)
Quarter: 2008Q4

REPORT INFORMATION
  Report Type: 
  Country: None (occurrence: None)
  Receive Date: 20081105
  Receipt Date: 20081030
  Transmission Date: 20090506
  Serious: Yes (Other)
  Sender: FDA-Public Use
  Company Number: US-ELI_LILLY_AND_COMPANY-US200811000402

PATIENT
  Sex: Male

DRUGS (3)
  1. HUMULIN N [Suspect]
  2. METOCLOPRAMIDE [Concomitant]
  3. VITAMIN B [Concomitant]

REACTIONS (2)
  - BLOOD GLUCOSE DECREASED [None]
  - ISCHAEMIC STROKE [None]
